FAERS Safety Report 5428338-X (Version None)
Quarter: 2007Q3

REPORT INFORMATION
  Report Type: 
  Country: None (occurrence: None)
  Receive Date: 20070823
  Receipt Date: 20070817
  Transmission Date: 20080115
  Serious: Yes (Hospitalization, Other)
  Sender: FDA-Public Use
  Company Number: 062-C5013-07051167

PATIENT
  Age: 82 Year
  Sex: Female
  Weight: 61 kg

DRUGS (8)
  1. CC-5013 (LENALIDOMIDE) (CAPSULES) [Suspect]
     Indication: MULTIPLE MYELOMA
     Dosage: 25 MG, DAILY, ORAL; 25 MG, DAILY, ORAL
     Route: 048
     Dates: start: 20070412, end: 20070427
  2. CC-5013 (LENALIDOMIDE) (CAPSULES) [Suspect]
     Indication: MULTIPLE MYELOMA
     Dosage: 25 MG, DAILY, ORAL; 25 MG, DAILY, ORAL
     Route: 048
     Dates: start: 20070427, end: 20070427
  3. ARANESP [Concomitant]
  4. NOVALIN [Concomitant]
  5. ALLOPURINOL [Concomitant]
  6. BONDRONAT (IBANDRONIC ACID) [Concomitant]
  7. CYUT [Concomitant]
  8. ATACAND [Concomitant]

REACTIONS (5)
  - CHOLESTASIS [None]
  - CONVULSION [None]
  - HEPATIC FAILURE [None]
  - PNEUMONIA [None]
  - RENAL FAILURE [None]
